FAERS Safety Report 23797551 (Version 6)
Quarter: 2024Q2

REPORT INFORMATION
  Report Type: Spontaneous
  Country: BE (occurrence: BE)
  Receive Date: 20240430
  Receipt Date: 20240625
  Transmission Date: 20240716
  Serious: Yes (Hospitalization, Other)
  Sender: FDA-Public Use
  Company Number: BE-SANOFI-02027072

PATIENT
  Sex: Female

DRUGS (3)
  1. DUPIXENT [Suspect]
     Active Substance: DUPILUMAB
     Indication: Pruritus
     Dosage: 1 DF, QOW
     Dates: start: 202308, end: 202404
  2. DUPIXENT [Suspect]
     Active Substance: DUPILUMAB
     Indication: Dermatitis atopic
  3. DUPIXENT [Suspect]
     Active Substance: DUPILUMAB
     Indication: Eczema

REACTIONS (23)
  - Gastrointestinal disorder [Unknown]
  - Oesophageal spasm [Unknown]
  - Gastric volvulus [Not Recovered/Not Resolved]
  - Eosinophilic colitis [Unknown]
  - Oesophageal disorder [Unknown]
  - Speech disorder [Not Recovered/Not Resolved]
  - Cholelithiasis [Not Recovered/Not Resolved]
  - Feeding disorder [Not Recovered/Not Resolved]
  - Palpitations [Not Recovered/Not Resolved]
  - Hospitalisation [Not Recovered/Not Resolved]
  - Pain [Unknown]
  - Muscle strain [Not Recovered/Not Resolved]
  - Therapeutic product effect delayed [Unknown]
  - Gastritis [Unknown]
  - Enteritis [Unknown]
  - Feeding disorder [Unknown]
  - Dysphagia [Unknown]
  - Food allergy [Unknown]
  - Speech disorder [Unknown]
  - Cholelithiasis [Unknown]
  - Liver function test abnormal [Unknown]
  - Cardiac function test abnormal [Unknown]
  - Lymphadenopathy [Unknown]

NARRATIVE: CASE EVENT DATE: 20231101
